FAERS Safety Report 8255398-3 (Version None)
Quarter: 2012Q2

REPORT INFORMATION
  Report Type: 
  Country: None (occurrence: None)
  Receive Date: 20120403
  Receipt Date: 20120326
  Transmission Date: 20120825
  Serious: Yes (Hospitalization)
  Sender: FDA-Public Use
  Company Number: US-ASTELLAS-2012US002290

PATIENT
  Sex: Female
  Weight: 12 kg

DRUGS (17)
  1. NIZORAL [Concomitant]
     Indication: PRODUCT USED FOR UNKNOWN INDICATION
     Dosage: 2 %, UNKNOWN/D
     Route: 050
  2. MOTRIN [Concomitant]
     Indication: CONTUSION
     Dosage: 200 MG, Q6 HOURS
     Route: 048
     Dates: start: 20111021
  3. CEPHALEXIN [Concomitant]
     Indication: PHARYNGITIS
     Dosage: 1 DF, Q12 HOURS
     Route: 065
     Dates: start: 20110919
  4. TYLENOL [Concomitant]
     Indication: PRODUCT USED FOR UNKNOWN INDICATION
     Dosage: 160 MG/5 ML, UNKNOWN/D
     Route: 048
  5. XOPENEX [Concomitant]
     Indication: PRODUCT USED FOR UNKNOWN INDICATION
     Dosage: 3 ML, TID
     Route: 055
  6. PEDIATEX TD [Concomitant]
     Indication: PRODUCT USED FOR UNKNOWN INDICATION
     Dosage: 1 DF, Q6 HOURS
     Route: 048
  7. RIFAMPIN [Concomitant]
     Indication: PRODUCT USED FOR UNKNOWN INDICATION
     Dosage: UNK
     Route: 065
  8. ISONIAZID [Concomitant]
     Indication: PRODUCT USED FOR UNKNOWN INDICATION
     Dosage: 300 MG, UID/QD
     Route: 048
  9. NASONEX [Concomitant]
     Indication: PRODUCT USED FOR UNKNOWN INDICATION
     Dosage: 2 DF, UID/QD
     Route: 055
  10. TACROLIMUS [Suspect]
     Dosage: 0.1 %, BID
     Route: 061
  11. TEMOVATE [Concomitant]
     Indication: PRODUCT USED FOR UNKNOWN INDICATION
     Dosage: 0.05 %, UNKNOWN/D
     Route: 061
  12. BIAXIN [Concomitant]
     Indication: PRODUCT USED FOR UNKNOWN INDICATION
     Dosage: 250 MG, UNKNOWN/D
     Route: 048
  13. TACROLIMUS [Suspect]
     Indication: DERMATITIS ATOPIC
     Dosage: 0.03 %, BID
     Route: 061
     Dates: start: 20100110
  14. CLEMASTINE FUMARATE [Concomitant]
     Indication: PHARYNGITIS
     Dosage: 0.5 DF, BID
     Route: 065
     Dates: start: 20110919
  15. CERAVE [Concomitant]
     Indication: PRODUCT USED FOR UNKNOWN INDICATION
     Dosage: 1 DF, UNKNOWN/D
     Route: 061
  16. NYSTATIN W/TRIAMCINOLONE [Concomitant]
     Indication: DERMATITIS DIAPER
     Dosage: 1 DF, BID
     Route: 061
  17. ZYRTEC [Concomitant]
     Indication: PRODUCT USED FOR UNKNOWN INDICATION
     Dosage: 5 MG, UID/QD
     Route: 048

REACTIONS (2)
  - LYMPHADENITIS [None]
  - OFF LABEL USE [None]
